APPROVED DRUG PRODUCT: CEFPODOXIME PROXETIL
Active Ingredient: CEFPODOXIME PROXETIL
Strength: EQ 100MG BASE
Dosage Form/Route: TABLET;ORAL
Application: A210568 | Product #001 | TE Code: AB
Applicant: ALKEM LABORATORIES LTD
Approved: May 18, 2022 | RLD: No | RS: No | Type: RX